FAERS Safety Report 12920032 (Version 2)
Quarter: 2016Q4

REPORT INFORMATION
  Report Type: Spontaneous
  Country: JP (occurrence: JP)
  Receive Date: 20161108
  Receipt Date: 20161115
  Transmission Date: 20170207
  Serious: Yes (Hospitalization)
  Sender: FDA-Public Use
  Company Number: JP-TEVA-707418ISR

PATIENT
  Age: 63 Year
  Sex: Male

DRUGS (2)
  1. SODIUM RISEDRONATE HYDRATE [Suspect]
     Active Substance: RISEDRONATE SODIUM HEMI-PENTAHYDRATE
     Indication: SPINAL COLUMN STENOSIS
     Route: 048
     Dates: start: 200001
  2. SODIUM RISEDRONATE HYDRATE [Suspect]
     Active Substance: RISEDRONATE SODIUM HEMI-PENTAHYDRATE
     Indication: OSTEOPOROSIS

REACTIONS (10)
  - Osteonecrosis of jaw [Recovering/Resolving]
  - Trismus [Unknown]
  - Pituitary-dependent Cushing^s syndrome [Unknown]
  - Cellulitis [Recovering/Resolving]
  - Primary sequestrum [Unknown]
  - Osteosclerosis [Unknown]
  - Fistula [Unknown]
  - Osteolysis [Unknown]
  - Swelling face [Unknown]
  - Toothache [Unknown]

NARRATIVE: CASE EVENT DATE: 201603
